FAERS Safety Report 13479027 (Version 3)
Quarter: 2017Q2

REPORT INFORMATION
  Report Type: Spontaneous
  Country: TR (occurrence: TR)
  Receive Date: 20170425
  Receipt Date: 20170518
  Transmission Date: 20170830
  Serious: Yes (Other)
  Sender: FDA-Public Use
  Company Number: TR-TAKEDA-2017MPI003698

PATIENT
  Age: 42 Year
  Sex: Female

DRUGS (3)
  1. VELCADE [Suspect]
     Active Substance: BORTEZOMIB
     Indication: CHRONIC LYMPHOCYTIC LEUKAEMIA
     Dosage: 1.4 MG/M2, UNK
     Route: 058
  2. METHOTREXATE. [Concomitant]
     Active Substance: METHOTREXATE
     Dosage: 7.5 MG/M2, UNK
     Route: 042
  3. METHYLPREDNISOLONE. [Concomitant]
     Active Substance: METHYLPREDNISOLONE
     Indication: GRAFT VERSUS HOST DISEASE
     Dosage: 1 MG/KG, QD
     Route: 065

REACTIONS (9)
  - Bacterial infection [Unknown]
  - Cytomegalovirus viraemia [Unknown]
  - Hypogammaglobulinaemia [Unknown]
  - Diabetes mellitus [Unknown]
  - Dry eye [Unknown]
  - Product use in unapproved indication [Unknown]
  - Oral lichen planus [Unknown]
  - Hyperkeratosis [Unknown]
  - Off label use [Unknown]
